FAERS Safety Report 13706497 (Version 1)
Quarter: 2017Q2

REPORT INFORMATION
  Report Type: Spontaneous
  Country: AT (occurrence: AT)
  Receive Date: 20170630
  Receipt Date: 20170630
  Transmission Date: 20170830
  Serious: Yes (Hospitalization, Other)
  Sender: FDA-Public Use
  Company Number: AT-SA-2017SA114420

PATIENT
  Age: 16 Year
  Sex: Female

DRUGS (28)
  1. PREDNISOLONE. [Suspect]
     Active Substance: PREDNISOLONE
     Indication: INJURY
     Route: 065
  2. ERYTHROMYCIN. [Suspect]
     Active Substance: ERYTHROMYCIN
     Indication: INJURY
     Route: 065
  3. ERYTHROMYCIN. [Suspect]
     Active Substance: ERYTHROMYCIN
     Indication: HEAD INJURY
     Route: 065
  4. METRONIDAZOLE. [Suspect]
     Active Substance: METRONIDAZOLE
     Indication: INJURY
     Route: 065
  5. TOBRAMYCIN. [Suspect]
     Active Substance: TOBRAMYCIN
     Indication: INJURY
     Route: 065
  6. METRONIDAZOLE. [Suspect]
     Active Substance: METRONIDAZOLE
     Indication: HEAD INJURY
     Route: 065
  7. LEVOFLOXACIN. [Suspect]
     Active Substance: LEVOFLOXACIN
     Indication: HEAD INJURY
     Route: 065
  8. ZYVOXID [Suspect]
     Active Substance: LINEZOLID
     Indication: HEAD INJURY
     Route: 065
  9. CASPOFUNGIN [Concomitant]
     Active Substance: CASPOFUNGIN
  10. VANCOMYCIN [Suspect]
     Active Substance: VANCOMYCIN
     Indication: INJURY
     Route: 065
  11. TOBRAMYCIN. [Suspect]
     Active Substance: TOBRAMYCIN
     Indication: HEAD INJURY
     Route: 065
  12. PREDNISOLONE. [Suspect]
     Active Substance: PREDNISOLONE
     Indication: HEAD INJURY
     Route: 065
  13. FOSFOMYCIN [Suspect]
     Active Substance: FOSFOMYCIN
     Indication: HEAD INJURY
     Route: 065
  14. LEVOFLOXACIN. [Suspect]
     Active Substance: LEVOFLOXACIN
     Indication: INJURY
     Route: 065
  15. DEXAMETHASONE SALT NOT SPECIFIED [Suspect]
     Active Substance: DEXAMETHASONE
     Indication: HEAD INJURY
     Route: 065
  16. HYDROCORTISONE. [Suspect]
     Active Substance: HYDROCORTISONE
     Indication: INJURY
     Route: 065
  17. MEROPENEM. [Suspect]
     Active Substance: MEROPENEM
     Route: 065
  18. DEXAMETHASONE SALT NOT SPECIFIED [Suspect]
     Active Substance: DEXAMETHASONE
     Indication: INJURY
     Route: 065
  19. HYDROCORTISONE. [Suspect]
     Active Substance: HYDROCORTISONE
     Indication: HEAD INJURY
     Route: 065
  20. FOSFOMYCIN [Suspect]
     Active Substance: FOSFOMYCIN
     Indication: INJURY
     Route: 065
  21. CIPROFLOXACIN. [Suspect]
     Active Substance: CIPROFLOXACIN
     Indication: INJURY
     Route: 065
  22. MEROPENEM. [Suspect]
     Active Substance: MEROPENEM
     Route: 065
  23. CEFOTAXIME [Suspect]
     Active Substance: CEFOTAXIME SODIUM
     Indication: HEAD INJURY
     Route: 065
  24. CIPROFLOXACIN. [Suspect]
     Active Substance: CIPROFLOXACIN
     Indication: HEAD INJURY
     Route: 065
  25. VANCOMYCIN [Suspect]
     Active Substance: VANCOMYCIN
     Indication: HEAD INJURY
     Route: 065
  26. MEROPENEM. [Suspect]
     Active Substance: MEROPENEM
     Route: 065
  27. CEFOTAXIME [Suspect]
     Active Substance: CEFOTAXIME SODIUM
     Indication: INJURY
     Route: 065
  28. ZYVOXID [Suspect]
     Active Substance: LINEZOLID
     Indication: INJURY
     Route: 065

REACTIONS (8)
  - Intestinal villi atrophy [Recovered/Resolved]
  - Haemophilus infection [Recovered/Resolved]
  - Dysbacteriosis [Recovered/Resolved]
  - Diarrhoea [Recovered/Resolved]
  - Endoscopy abnormal [Recovered/Resolved]
  - Histology abnormal [Recovered/Resolved]
  - Enterocolitis [Recovered/Resolved]
  - Mucosal hyperaemia [Recovered/Resolved]
